FAERS Safety Report 7169780-9 (Version None)
Quarter: 2010Q4

REPORT INFORMATION
  Report Type: 
  Country: None (occurrence: None)
  Receive Date: 20101217
  Receipt Date: 20100629
  Transmission Date: 20110411
  Serious: No
  Sender: FDA-Public Use
  Company Number: A0867674A

PATIENT
  Age: 54 Year
  Sex: Male

DRUGS (3)
  1. SORIATANE [Suspect]
     Indication: PRECANCEROUS SKIN LESION
     Route: 048
     Dates: start: 20091014, end: 20100607
  2. TOPROL-XL [Concomitant]
  3. MICARDIS [Concomitant]

REACTIONS (2)
  - ALOPECIA [None]
  - THERAPEUTIC RESPONSE UNEXPECTED [None]
